FAERS Safety Report 25811536 (Version 2)
Quarter: 2025Q3

REPORT INFORMATION
  Report Type: Spontaneous
  Country: US (occurrence: US)
  Receive Date: 20250917
  Receipt Date: 20250925
  Transmission Date: 20251021
  Serious: Yes (Death, Life-Threatening, Hospitalization, Other)
  Sender: ALEXION PHARMACEUTICALS
  Company Number: US-AstraZeneca-CH-00950332A

PATIENT
  Age: 79 Year
  Sex: Female
  Weight: 48.9 kg

DRUGS (8)
  1. TRUQAP [Suspect]
     Active Substance: CAPIVASERTIB
     Indication: Breast cancer
     Dates: start: 20250820, end: 20250904
  2. FASLODEX [Concomitant]
     Active Substance: FULVESTRANT
  3. ALENDRONATE [Concomitant]
     Active Substance: ALENDRONATE SODIUM
  4. LOMOTIL [Concomitant]
     Active Substance: ATROPINE SULFATE\DIPHENOXYLATE HYDROCHLORIDE
  5. CARVEDILOL [Concomitant]
     Active Substance: CARVEDILOL
  6. CHOLECALCIFEROL [Concomitant]
     Active Substance: CHOLECALCIFEROL
  7. DOCUSATE [Concomitant]
     Active Substance: DOCUSATE
  8. FERROUS SULFATE [Concomitant]
     Active Substance: FERROUS SULFATE

REACTIONS (13)
  - Diabetic ketoacidosis [Fatal]
  - Pulmonary oedema [Fatal]
  - Acute kidney injury [Fatal]
  - Hypotension [Unknown]
  - Lethargy [Unknown]
  - Somnolence [Unknown]
  - Metabolic acidosis [Unknown]
  - Septic shock [Unknown]
  - Encephalopathy [Unknown]
  - Oliguria [Unknown]
  - Cardiac failure [Unknown]
  - Oedema [Unknown]
  - Urinary tract infection [Unknown]

NARRATIVE: CASE EVENT DATE: 20250904
